FAERS Safety Report 19036931 (Version 1)
Quarter: 2021Q1

REPORT INFORMATION
  Report Type: Spontaneous
  Country: US (occurrence: US)
  Receive Date: 20210319
  Receipt Date: 20210319
  Transmission Date: 20210420
  Serious: No
  Sender: FDA-Public Use
  Company Number: None

PATIENT
  Sex: Female

DRUGS (1)
  1. VUMERITY [Suspect]
     Active Substance: DIROXIMEL FUMARATE
     Indication: MULTIPLE SCLEROSIS
     Route: 048
     Dates: start: 20210226

REACTIONS (6)
  - Abdominal discomfort [None]
  - Diarrhoea [None]
  - Hypoaesthesia [None]
  - Dyspnoea [None]
  - Muscle tightness [None]
  - Rhinorrhoea [None]
